FAERS Safety Report 9157206 (Version 1)
Quarter: 2013Q1

REPORT INFORMATION
  Report Type: Spontaneous
  Country: IE (occurrence: IE)
  Receive Date: 20130312
  Receipt Date: 20130312
  Transmission Date: 20140127
  Serious: Yes (Other)
  Sender: FDA-Public Use
  Company Number: IE-PFIZER INC-2013079990

PATIENT
  Sex: Male

DRUGS (2)
  1. XALKORI [Suspect]
     Dosage: 250 MG, 2X/DAY
  2. RANEXA [Suspect]
     Indication: ANGINA PECTORIS

REACTIONS (1)
  - Cardiac arrest [Unknown]
